FAERS Safety Report 8387905-4 (Version None)
Quarter: 2012Q2

REPORT INFORMATION
  Report Type: 
  Country: None (occurrence: None)
  Receive Date: 20120525
  Receipt Date: 20120524
  Transmission Date: 20120825
  Serious: Yes (Death)
  Sender: FDA-Public Use
  Company Number: AU-B.I. PHARMACEUTICALS,INC./RIDGEFIELD-2012-AU-00976AU

PATIENT
  Age: 68 Year
  Sex: Male

DRUGS (3)
  1. LASIX [Concomitant]
  2. METFORMIN HCL [Concomitant]
  3. PRADAXA [Suspect]
     Indication: CEREBROVASCULAR ACCIDENT PROPHYLAXIS
     Dosage: 300 MG

REACTIONS (1)
  - SEPSIS [None]
